FAERS Safety Report 9543532 (Version 1)
Quarter: 2013Q3

REPORT INFORMATION
  Report Type: Spontaneous
  Country: US (occurrence: US)
  Receive Date: 20130923
  Receipt Date: 20130923
  Transmission Date: 20140515
  Serious: No
  Sender: FDA-Public Use
  Company Number: US-VERTEX PHARMACEUTICALS INC-2013-009617

PATIENT
  Age: 35 Year
  Sex: Female
  Weight: 59.86 kg

DRUGS (7)
  1. INCIVEK [Suspect]
     Indication: HEPATITIS C
     Dosage: 750 MG, TID
     Route: 048
     Dates: start: 201307
  2. RIBAVIRIN [Suspect]
     Indication: HEPATITIS C
     Dosage: 400 MG, BID
     Route: 048
     Dates: start: 201307, end: 201309
  3. RIBAVIRIN [Suspect]
     Dosage: 200 MG AM, 400 MG PM
     Route: 048
     Dates: start: 201309
  4. PEGASYS [Suspect]
     Indication: HEPATITIS C
     Dosage: 180 ?G, QW
     Route: 058
     Dates: start: 201307
  5. BENADRYL [Concomitant]
     Indication: PRURITUS
     Route: 048
  6. HYDROCORTISONE CREAM [Concomitant]
     Indication: RASH PRURITIC
     Route: 061
  7. AVEENO [Concomitant]
     Indication: DRY SKIN
     Route: 061

REACTIONS (6)
  - Oral pain [Not Recovered/Not Resolved]
  - Ear swelling [Not Recovered/Not Resolved]
  - Decreased appetite [Not Recovered/Not Resolved]
  - Swelling face [Not Recovered/Not Resolved]
  - Red blood cell count decreased [Not Recovered/Not Resolved]
  - Rash pruritic [Not Recovered/Not Resolved]
